FAERS Safety Report 4510411-1 (Version None)
Quarter: 2004Q4

REPORT INFORMATION
  Report Type: 
  Country: None (occurrence: None)
  Receive Date: 20041122
  Receipt Date: 20041109
  Transmission Date: 20050328
  Serious: Yes (Hospitalization)
  Sender: FDA-Public Use
  Company Number: 201705

PATIENT
  Age: 48 Year
  Sex: Female
  Weight: 81.6475 kg

DRUGS (9)
  1. AVONEX [Suspect]
     Indication: MULTIPLE SCLEROSIS
     Dosage: 30 MCG QW IM
     Route: 030
     Dates: start: 20020101, end: 20040101
  2. AVONEX [Suspect]
     Indication: MULTIPLE SCLEROSIS
     Dosage: 30 MCG QW IM
     Route: 030
     Dates: start: 20040101, end: 20040501
  3. PRAVACHOL [Concomitant]
  4. ELAVIL [Concomitant]
  5. XANAX [Concomitant]
  6. SYNTHROID [Concomitant]
  7. DURAGESIC [Concomitant]
  8. DARVOCET-N 100 [Concomitant]
  9. SEASONALE [Concomitant]

REACTIONS (14)
  - ABASIA [None]
  - ADENOMYOSIS [None]
  - ARTHRALGIA [None]
  - CHONDRITIS [None]
  - DIARRHOEA [None]
  - EXCORIATION [None]
  - GASTROOESOPHAGEAL REFLUX DISEASE [None]
  - HAEMOGLOBIN DECREASED [None]
  - INFLUENZA LIKE ILLNESS [None]
  - MUSCLE SPASMS [None]
  - NECROSIS [None]
  - PAIN [None]
  - POST PROCEDURAL HAEMORRHAGE [None]
  - TREMOR [None]
